FAERS Safety Report 18296443 (Version 5)
Quarter: 2021Q2

REPORT INFORMATION
  Report Type: Spontaneous
  Country: US (occurrence: US)
  Receive Date: 20200922
  Receipt Date: 20210625
  Transmission Date: 20210717
  Serious: Yes (Other)
  Sender: FDA-Public Use
  Company Number: US-GILEAD-2020-0495296

PATIENT
  Age: 51 Year
  Sex: Male
  Weight: 63.49 kg

DRUGS (20)
  1. EPIVIR [Concomitant]
     Active Substance: LAMIVUDINE
  2. REYATAZ [Concomitant]
     Active Substance: ATAZANAVIR SULFATE
  3. ISENTRESS [Concomitant]
     Active Substance: RALTEGRAVIR POTASSIUM
  4. ZIAGEN [Concomitant]
     Active Substance: ABACAVIR SULFATE
  5. ZERIT [Concomitant]
     Active Substance: STAVUDINE
  6. COMPLERA [Suspect]
     Active Substance: EMTRICITABINE\RILPIVIRINE HYDROCHLORIDE\TENOFOVIR DISOPROXIL FUMARATE
     Indication: HIV INFECTION
     Dosage: UNK
     Route: 048
     Dates: start: 2001
  7. NORVIR [Concomitant]
     Active Substance: RITONAVIR
  8. ATRIPLA [Suspect]
     Active Substance: EFAVIRENZ\EMTRICITABINE\TENOFOVIR DISOPROXIL FUMARATE
     Indication: HIV INFECTION
     Dosage: UNK
     Route: 048
     Dates: start: 2001
  9. ALLEGRA [Concomitant]
     Active Substance: FEXOFENADINE HYDROCHLORIDE
  10. TRUVADA [Suspect]
     Active Substance: EMTRICITABINE\TENOFOVIR DISOPROXIL FUMARATE
     Indication: HIV INFECTION
     Dosage: UNK
     Route: 048
     Dates: start: 2001
  11. ASPIRINE [Concomitant]
     Active Substance: ASPIRIN
  12. VALTREX [Concomitant]
     Active Substance: VALACYCLOVIR HYDROCHLORIDE
  13. VIREAD [Suspect]
     Active Substance: TENOFOVIR DISOPROXIL FUMARATE
     Indication: HIV INFECTION
     Dosage: UNK
     Route: 048
     Dates: start: 2001
  14. VIREAD [Suspect]
     Active Substance: TENOFOVIR DISOPROXIL FUMARATE
     Dosage: UNK
     Route: 048
     Dates: start: 20021010, end: 20080508
  15. SUSTIVA [Concomitant]
     Active Substance: EFAVIRENZ
  16. TRIZIVIR [Concomitant]
     Active Substance: ABACAVIR SULFATE\LAMIVUDINE\ZIDOVUDINE
  17. LASIX [Concomitant]
     Active Substance: FUROSEMIDE
  18. CRIXIVAN [Concomitant]
     Active Substance: INDINAVIR SULFATE
  19. STRIBILD [Suspect]
     Active Substance: COBICISTAT\ELVITEGRAVIR\EMTRICITABINE\TENOFOVIR DISOPROXIL FUMARATE
     Indication: HIV INFECTION
     Dosage: UNK
     Route: 048
     Dates: start: 2011
  20. RETROVIR [Concomitant]
     Active Substance: ZIDOVUDINE

REACTIONS (26)
  - End stage renal disease [Not Recovered/Not Resolved]
  - Hypophosphataemia [Recovered/Resolved]
  - Depression [Unknown]
  - Proteinuria [Not Recovered/Not Resolved]
  - Diarrhoea [Unknown]
  - Osteoporosis [Not Recovered/Not Resolved]
  - Spinal osteoarthritis [Not Recovered/Not Resolved]
  - Chronic kidney disease [Unknown]
  - Renal cyst [Not Recovered/Not Resolved]
  - Anhedonia [Unknown]
  - Blood creatinine increased [Not Recovered/Not Resolved]
  - Haematuria [Not Recovered/Not Resolved]
  - Skeletal injury [Unknown]
  - Osteopenia [Unknown]
  - Vitamin D deficiency [Unknown]
  - Renal injury [Unknown]
  - Bone density decreased [Unknown]
  - Anxiety [Unknown]
  - Hypertension [Not Recovered/Not Resolved]
  - Nephrolithiasis [Not Recovered/Not Resolved]
  - Intervertebral disc degeneration [Not Recovered/Not Resolved]
  - Emotional distress [Unknown]
  - Pain [Unknown]
  - Renal failure [Not Recovered/Not Resolved]
  - Vertebral foraminal stenosis [Not Recovered/Not Resolved]
  - Hyperlipidaemia [Unknown]

NARRATIVE: CASE EVENT DATE: 20070808
